FAERS Safety Report 6746618-2 (Version None)
Quarter: 2010Q2

REPORT INFORMATION
  Report Type: 
  Country: None (occurrence: None)
  Receive Date: 20100528
  Receipt Date: 20090618
  Transmission Date: 20101027
  Serious: No
  Sender: FDA-Public Use
  Company Number: US-ASTRAZENECA-2009SE10076

PATIENT
  Sex: Female

DRUGS (3)
  1. PRILOSEC OTC [Suspect]
     Route: 048
     Dates: start: 20090514, end: 20090617
  2. BLOOD PRESSURE MEDICATION [Concomitant]
     Dosage: UNKNOWN
  3. AZOR                               /00595201/ [Concomitant]
     Dosage: UNKNOWN

REACTIONS (3)
  - HEADACHE [None]
  - INCORRECT DRUG ADMINISTRATION DURATION [None]
  - NAUSEA [None]
